FAERS Safety Report 6991311 (Version 72)
Quarter: 2018Q2

REPORT INFORMATION
  Report Type: Report from Study
  Country: CA (occurrence: CA)
  Receive Date: 20090511
  Receipt Date: 20180606
  Transmission Date: 20180711
  Serious: Yes (Hospitalization, Other)
  Sender: FDA-Public Use
  Company Number: PHHY2009CA17384

PATIENT
  Age: 44 Year
  Sex: Female

DRUGS (19)
  1. SANDOSTATIN LAR DEPOT [Suspect]
     Active Substance: OCTREOTIDE ACETATE
     Dosage: 40 MG, QMO
     Route: 030
  2. IRON [Concomitant]
     Active Substance: IRON
     Indication: PRODUCT USED FOR UNKNOWN INDICATION
     Route: 065
  3. VENTOLIN [Concomitant]
     Active Substance: ALBUTEROL SULFATE
     Indication: PRODUCT USED FOR UNKNOWN INDICATION
     Route: 065
  4. DOLOPHINE [Concomitant]
     Active Substance: METHADONE HYDROCHLORIDE
     Indication: HEADACHE
     Route: 065
  5. SANDOSTATIN LAR DEPOT [Suspect]
     Active Substance: OCTREOTIDE ACETATE
     Dosage: 40 MG, QMO (EVERY 4 WEEKS)
     Route: 030
     Dates: start: 20141009
  6. SANDOSTATIN LAR DEPOT [Suspect]
     Active Substance: OCTREOTIDE ACETATE
     Dosage: 40 MG, QMO (EVERY 4 WEEKS)
     Route: 030
     Dates: start: 20151204, end: 20160525
  7. RAMIPRIL. [Suspect]
     Active Substance: RAMIPRIL
     Dosage: 10 MG, DAILY (INCREASED TO AN EXTRA 2.5 MG TWICE DAILY)
     Route: 065
  8. PANTOLOC [Concomitant]
     Active Substance: PANTOPRAZOLE SODIUM
     Indication: PRODUCT USED FOR UNKNOWN INDICATION
     Route: 065
  9. SANDOSTATIN LAR DEPOT [Suspect]
     Active Substance: OCTREOTIDE ACETATE
     Indication: ACROMEGALY
     Dosage: 40 MG, QMO (EVERY 4 WEEKS)
     Route: 030
     Dates: start: 20050910
  10. TYLENOL [Concomitant]
     Active Substance: ACETAMINOPHEN
     Dosage: UNK UNK, AS NEEDED
     Route: 065
  11. RAMIPRIL. [Suspect]
     Active Substance: RAMIPRIL
     Indication: HYPERTENSION
     Dosage: 5 MG, QD
     Route: 065
  12. CORTEF [Concomitant]
     Active Substance: HYDROCORTISONE
     Indication: PRODUCT USED FOR UNKNOWN INDICATION
     Route: 065
  13. SANDOSTATIN LAR DEPOT [Suspect]
     Active Substance: OCTREOTIDE ACETATE
     Dosage: 40 MG, QMO (EVERY 4 WEEKS)
     Route: 030
     Dates: start: 20141108
  14. RAMIPRIL. [Suspect]
     Active Substance: RAMIPRIL
     Dosage: 10 MG, BID (10 MG AM AND 10 MG PM)
     Route: 065
  15. PROZAC [Concomitant]
     Active Substance: FLUOXETINE HYDROCHLORIDE
     Indication: PRODUCT USED FOR UNKNOWN INDICATION
     Route: 065
  16. SYNTHROID [Concomitant]
     Active Substance: LEVOTHYROXINE SODIUM
     Indication: PRODUCT USED FOR UNKNOWN INDICATION
     Route: 065
  17. ALVESCO [Concomitant]
     Active Substance: CICLESONIDE
     Indication: PRODUCT USED FOR UNKNOWN INDICATION
     Route: 065
  18. TYLENOL [Concomitant]
     Active Substance: ACETAMINOPHEN
     Indication: PRODUCT USED FOR UNKNOWN INDICATION
     Dosage: UNK
     Route: 065
  19. TYLENOL [Concomitant]
     Active Substance: ACETAMINOPHEN
     Dosage: 3 OR 4 DF, QD
     Route: 065

REACTIONS (73)
  - Musculoskeletal pain [Not Recovered/Not Resolved]
  - Diabetes mellitus inadequate control [Not Recovered/Not Resolved]
  - Dyspnoea [Not Recovered/Not Resolved]
  - Injection site induration [Unknown]
  - Feeling hot [Recovered/Resolved]
  - Oropharyngeal pain [Unknown]
  - Dizziness [Recovered/Resolved]
  - Fatigue [Unknown]
  - Chest pain [Not Recovered/Not Resolved]
  - Sinus pain [Unknown]
  - Weight decreased [Unknown]
  - Scab [Unknown]
  - Needle issue [Unknown]
  - Nasopharyngitis [Unknown]
  - Injection site mass [Unknown]
  - Headache [Not Recovered/Not Resolved]
  - Sepsis [Unknown]
  - Injection site pain [Unknown]
  - Photopsia [Unknown]
  - Eye pain [Recovered/Resolved]
  - Vulvovaginal mycotic infection [Unknown]
  - Eye disorder [Recovered/Resolved]
  - Injection site swelling [Unknown]
  - Injection site erythema [Unknown]
  - Blood growth hormone increased [Unknown]
  - Blood glucose fluctuation [Unknown]
  - Malaise [Unknown]
  - Blood pressure fluctuation [Not Recovered/Not Resolved]
  - Blood glucose increased [Unknown]
  - Cerebral haemorrhage [Unknown]
  - Haemoptysis [Unknown]
  - Uterine mass [Not Recovered/Not Resolved]
  - Muscle swelling [Unknown]
  - Feeling of body temperature change [Unknown]
  - Back pain [Not Recovered/Not Resolved]
  - Injection site bruising [Unknown]
  - Musculoskeletal discomfort [Unknown]
  - Oral fungal infection [Unknown]
  - Cough [Unknown]
  - Pneumonia [Recovering/Resolving]
  - Haematemesis [Unknown]
  - Blood cholesterol increased [Unknown]
  - Stress [Unknown]
  - Hypoaesthesia [Unknown]
  - Gait disturbance [Unknown]
  - Administration site bruise [Unknown]
  - Pain [Unknown]
  - Vomiting [Unknown]
  - Blood pressure increased [Unknown]
  - Pyrexia [Not Recovered/Not Resolved]
  - Chills [Recovered/Resolved]
  - Angiopathy [Unknown]
  - Tongue haemorrhage [Unknown]
  - Asthenia [Recovering/Resolving]
  - Cyst [Unknown]
  - Influenza [Recovered/Resolved]
  - Lung infection [Unknown]
  - Occult blood [Unknown]
  - Myocardial infarction [Unknown]
  - Pain in extremity [Not Recovered/Not Resolved]
  - Blood glucose decreased [Recovering/Resolving]
  - Blood pressure systolic increased [Unknown]
  - Faeces discoloured [Recovered/Resolved]
  - Tremor [Recovering/Resolving]
  - Painful respiration [Unknown]
  - Wheezing [Unknown]
  - Restlessness [Unknown]
  - Haematochezia [Unknown]
  - Peripheral swelling [Unknown]
  - Road traffic accident [Unknown]
  - Pollakiuria [Unknown]
  - Nausea [Unknown]
  - Lethargy [Not Recovered/Not Resolved]

NARRATIVE: CASE EVENT DATE: 20100201
